FAERS Safety Report 9692882 (Version 2)
Quarter: 2013Q4

REPORT INFORMATION
  Report Type: Spontaneous
  Country: TR (occurrence: TR)
  Receive Date: 20131118
  Receipt Date: 20131118
  Transmission Date: 20140711
  Serious: Yes (Other)
  Sender: FDA-Public Use
  Company Number: PHHY2012TR112577

PATIENT
  Age: 39 Year
  Sex: Female

DRUGS (5)
  1. NIFEDIPINE [Suspect]
     Indication: TOCOLYSIS
     Dosage: 20 MG, Q4H
     Route: 048
  2. AMOXICILLIN [Suspect]
     Dosage: 1 G, Q6H
     Route: 042
  3. BETAMETHASONE [Suspect]
     Dosage: 12 MG, DAILY
     Route: 030
  4. PARENTERAL NUTRITION [Suspect]
     Dosage: 2000 ML, UNK
  5. PARENTERAL NUTRITION [Suspect]
     Dosage: 1000 ML, UNK

REACTIONS (11)
  - Respiratory arrest [Recovered/Resolved]
  - Pleural effusion [Recovered/Resolved]
  - Atelectasis [Recovered/Resolved]
  - Cardiac arrest [Recovered/Resolved]
  - Chest pain [Recovered/Resolved]
  - Pulmonary oedema [Recovered/Resolved]
  - Dyspnoea [Recovered/Resolved]
  - Hypoxia [Recovered/Resolved]
  - Back pain [Recovered/Resolved]
  - Premature labour [Unknown]
  - Maternal exposure during pregnancy [Unknown]
